FAERS Safety Report 22011071 (Version 1)
Quarter: 2023Q1

REPORT INFORMATION
  Report Type: Spontaneous
  Country: US (occurrence: US)
  Receive Date: 20230220
  Receipt Date: 20230220
  Transmission Date: 20230418
  Serious: No
  Sender: FDA-Public Use
  Company Number: US-SA-SAC20230217001057

PATIENT
  Age: 80 Year
  Sex: Female

DRUGS (1)
  1. CAPRELSA [Suspect]
     Active Substance: VANDETANIB
     Indication: Thyroid cancer
     Dosage: UNK
     Route: 048
     Dates: start: 20220329

REACTIONS (2)
  - Blood pressure increased [Unknown]
  - Fatigue [Unknown]
